FAERS Safety Report 5565184-0 (Version None)
Quarter: 2007Q4

REPORT INFORMATION
  Report Type: 
  Country: None (occurrence: None)
  Receive Date: 20071218
  Receipt Date: 20071214
  Transmission Date: 20080405
  Serious: Yes (Death)
  Sender: FDA-Public Use
  Company Number: AU-WYE-G00772507

PATIENT
  Age: 22 Year
  Sex: Male

DRUGS (2)
  1. EFFEXOR [Suspect]
     Dosage: UNKNOWN
     Route: 048
     Dates: start: 20040101, end: 20040101
  2. AURORIX [Suspect]
     Dosage: UNKNOWN
     Route: 048
     Dates: start: 20040101, end: 20040101

REACTIONS (1)
  - LOSS OF CONSCIOUSNESS [None]
